FAERS Safety Report 8984212 (Version 2)
Quarter: 2013Q1

REPORT INFORMATION
  Report Type: Spontaneous
  Country: US (occurrence: US)
  Receive Date: 20121226
  Receipt Date: 20130117
  Transmission Date: 20140127
  Serious: No
  Sender: FDA-Public Use
  Company Number: US-009507513-1212USA007007

PATIENT
  Age: 21 Year
  Sex: Female
  Weight: 58.96 kg

DRUGS (2)
  1. IMPLANON [Suspect]
     Indication: CONTRACEPTION
     Dosage: EVERY 3 YEARS UNK
     Route: 059
     Dates: start: 20090812
  2. ANTIMICROBIAL (UNSPECIFIED) [Concomitant]

REACTIONS (7)
  - Implant site pain [Unknown]
  - Musculoskeletal pain [Unknown]
  - Weight increased [Unknown]
  - Abdominal pain [Unknown]
  - Muscle spasms [Unknown]
  - Mood swings [Unknown]
  - Incorrect drug administration duration [Unknown]
